FAERS Safety Report 4583521-0 (Version None)
Quarter: 2005Q1

REPORT INFORMATION
  Report Type: 
  Country: None (occurrence: None)
  Receive Date: 20050211
  Receipt Date: 20050204
  Transmission Date: 20050727
  Serious: Yes (Hospitalization)
  Sender: FDA-Public Use
  Company Number: 2005CG00189

PATIENT
  Age: 84 Year
  Sex: Female
  Weight: 55 kg

DRUGS (10)
  1. OMEPRAZOLE [Suspect]
     Dosage: 20 MG DAILY PO
     Route: 048
     Dates: start: 20041021, end: 20041109
  2. HALDOL [Suspect]
     Indication: AGGRESSION
     Dosage: 1 MG BID PO
     Route: 048
     Dates: start: 20041026, end: 20041109
  3. HALDOL [Suspect]
     Indication: AGITATION
     Dosage: 1 MG BID PO
     Route: 048
     Dates: start: 20041026, end: 20041109
  4. HALDOL [Suspect]
     Indication: CONFUSIONAL STATE
     Dosage: 1 MG BID PO
     Route: 048
     Dates: start: 20041026, end: 20041109
  5. PIPRAM [Suspect]
     Dosage: 400 MG DAILY PO
     Route: 048
     Dates: end: 20041109
  6. COZAAR [Suspect]
     Dosage: 25 MG DAILY PO
     Route: 048
     Dates: end: 20041109
  7. STILNOX [Suspect]
     Dosage: 10 MG DAILY PO
     Route: 048
     Dates: start: 20040924, end: 20041109
  8. ARTHROTEC [Suspect]
     Dosage: 50 MG + 0.2 MG BID
     Dates: start: 20041021, end: 20041109
  9. UTEPLEX [Concomitant]
  10. PROPOFAN [Concomitant]

REACTIONS (11)
  - AGGRESSION [None]
  - AGITATION [None]
  - ARRHYTHMIA [None]
  - ATRIOVENTRICULAR BLOCK FIRST DEGREE [None]
  - CAROTID BRUIT [None]
  - CEREBRAL ATROPHY [None]
  - CHEST X-RAY ABNORMAL [None]
  - CONFUSIONAL STATE [None]
  - CREATININE RENAL CLEARANCE DECREASED [None]
  - LEUKOARAIOSIS [None]
  - MALAISE [None]
